FAERS Safety Report 18029413 (Version 2)
Quarter: 2020Q3

REPORT INFORMATION
  Report Type: Spontaneous
  Country: PH (occurrence: PH)
  Receive Date: 20200715
  Receipt Date: 20200824
  Transmission Date: 20201103
  Serious: Yes (Death, Other)
  Sender: FDA-Public Use
  Company Number: PH-JNJFOC-20200708797

PATIENT
  Age: 88 Year
  Sex: Male

DRUGS (3)
  1. ZYTIGA [Suspect]
     Active Substance: ABIRATERONE ACETATE
     Indication: PROSTATE CANCER
     Dosage: JUL OR AUG?2019, ONCE A DAY BEFORE BREAKFAST ? 4 TABS (250MG) TAKES 1 HOUR BEFORE BREAKFAST
     Route: 048
     Dates: start: 2019
  2. LUPROLEX [Suspect]
     Active Substance: LEUPROLIDE ACETATE
     Indication: PROSTATE CANCER
     Dosage: QUARTERLY
     Route: 065
     Dates: start: 2014
  3. PREDNISONE. [Concomitant]
     Active Substance: PREDNISONE
     Indication: PROSTATE CANCER
     Dosage: 1 HOUR AFTER BREAKFAST AND 1 TABLET OF PREDNISONE ON EVENING FOR PAIN.
     Route: 065

REACTIONS (7)
  - Prostate cancer stage IV [Fatal]
  - Cataract [Unknown]
  - Back injury [Unknown]
  - Dehydration [Unknown]
  - Mobility decreased [Unknown]
  - Acute kidney injury [Fatal]
  - Sepsis [Fatal]

NARRATIVE: CASE EVENT DATE: 201912
